FAERS Safety Report 10890421 (Version 2)
Quarter: 2015Q1

REPORT INFORMATION
  Report Type: Spontaneous
  Country: CH (occurrence: CH)
  Receive Date: 20150305
  Receipt Date: 20150311
  Transmission Date: 20150721
  Serious: Yes (Hospitalization)
  Sender: FDA-Public Use
  Company Number: CH-ROCHE-1548546

PATIENT
  Age: 8 Year
  Sex: Female

DRUGS (4)
  1. XOLAIR [Suspect]
     Active Substance: OMALIZUMAB
     Route: 058
     Dates: start: 20150122
  2. XYZAL [Concomitant]
     Active Substance: LEVOCETIRIZINE DIHYDROCHLORIDE
  3. XOLAIR [Suspect]
     Active Substance: OMALIZUMAB
     Indication: ANAPHYLACTIC REACTION
     Route: 058
  4. MYOZYME [Concomitant]
     Active Substance: ALGLUCOSIDASE ALFA

REACTIONS (2)
  - Product use issue [Unknown]
  - Hypertension [Not Recovered/Not Resolved]

NARRATIVE: CASE EVENT DATE: 20150203
